FAERS Safety Report 22725337 (Version 3)
Quarter: 2024Q2

REPORT INFORMATION
  Report Type: Spontaneous
  Country: RU (occurrence: RU)
  Receive Date: 20230719
  Receipt Date: 20240510
  Transmission Date: 20240716
  Serious: Yes (Hospitalization, Other)
  Sender: FDA-Public Use
  Company Number: RU-VERTEX PHARMACEUTICALS-2023-010304

PATIENT
  Age: 7 Year
  Sex: Male
  Weight: 15 kg

DRUGS (12)
  1. TRIKAFTA [Suspect]
     Active Substance: ELEXACAFTOR\IVACAFTOR\TEZACAFTOR
     Indication: Cystic fibrosis
     Dosage: 2 TABS AM AND 1 TAB PM
     Route: 048
     Dates: start: 20230222, end: 20230703
  2. TRIKAFTA [Suspect]
     Active Substance: ELEXACAFTOR\IVACAFTOR\TEZACAFTOR
     Dosage: REDUCED DOSE; NO EVENING DOSE
     Route: 048
     Dates: start: 20230713, end: 20230718
  3. TRIKAFTA [Suspect]
     Active Substance: ELEXACAFTOR\IVACAFTOR\TEZACAFTOR
     Dosage: FULL DOSE 2 TABS AM AND 1 TAB PM
     Route: 048
     Dates: start: 20230719
  4. TIGERASE [Concomitant]
     Dosage: 2.5 MILLIGRAM, QD IN AM
     Dates: start: 20230515, end: 20230526
  5. ACETYLCYSTEINE [Concomitant]
     Active Substance: ACETYLCYSTEINE
     Dosage: 200 MILLIGRAM, BID
  6. BIFRADUAL [Concomitant]
     Dosage: 10 CAPS, BID
  7. PULMIBUD [Concomitant]
     Dosage: 500 MICROGRAM, BID
  8. PANCREATIN [Concomitant]
     Active Substance: PANCRELIPASE
     Dosage: 100000 UT; 3 TIMES DAILY FOR MAIN MEAL
  9. PANCREATIN [Concomitant]
     Active Substance: PANCRELIPASE
     Dosage: 50000 UT; 3 TIMES DAILY FOR SNACK
  10. URCEVEL [Concomitant]
     Dosage: 500 MILLIGRAM, QD BEFORE BEDTIME
     Dates: start: 20230515, end: 20230526
  11. OMEPRAZOLE [Concomitant]
     Active Substance: DONEPEZIL HYDROCHLORIDE\OMEPRAZOLE\OMEPRAZOLE MAGNESIUM
     Dosage: 10 MILLIGRAM, BID
     Route: 048
  12. AZITHROMYCIN [Concomitant]
     Active Substance: AZITHROMYCIN
     Dosage: 125 MILLIGRAM
     Route: 048

REACTIONS (4)
  - Hypertensive encephalopathy [Recovered/Resolved]
  - Hypertensive crisis [Recovered/Resolved]
  - Hypokalaemia [Unknown]
  - Metabolic acidosis [Unknown]

NARRATIVE: CASE EVENT DATE: 20230703
